FAERS Safety Report 24130649 (Version 1)
Quarter: 2024Q3

REPORT INFORMATION
  Report Type: Spontaneous
  Country: CA (occurrence: None)
  Receive Date: 20240724
  Receipt Date: 20240724
  Transmission Date: 20241017
  Serious: Yes (Other)
  Sender: ASTRAZENECA
  Company Number: 2024A163751

PATIENT
  Age: 71 Year
  Sex: Male

DRUGS (18)
  1. ROSUVASTATIN [Suspect]
     Active Substance: ROSUVASTATIN
  2. ASPIRIN [Suspect]
     Active Substance: ASPIRIN
  3. AMLODIPINE BESYLATE [Suspect]
     Active Substance: AMLODIPINE BESYLATE
  4. BISOPROLOL FUMARATE [Suspect]
     Active Substance: BISOPROLOL FUMARATE
  5. CYANOCOBALAMIN [Suspect]
     Active Substance: CYANOCOBALAMIN
  6. GABAPENTIN [Suspect]
     Active Substance: GABAPENTIN
  7. HUMALOG [Suspect]
     Active Substance: INSULIN LISPRO
  8. MYCOPHENOLATE MOFETIL [Suspect]
     Active Substance: MYCOPHENOLATE MOFETIL
  9. NITROGLYCERIN [Suspect]
     Active Substance: NITROGLYCERIN
  10. NYSTATIN [Suspect]
     Active Substance: NYSTATIN
  11. POLYETHYLENE GLYCOL [Suspect]
     Active Substance: POLYETHYLENE GLYCOL
  12. PREDNISONE [Suspect]
     Active Substance: PREDNISONE
  13. SULFAMETHOXAZOLE AND TRIMETHOPRIM [Suspect]
     Active Substance: SULFAMETHOXAZOLE\TRIMETHOPRIM
  14. TACROLIMUS [Suspect]
     Active Substance: TACROLIMUS
  15. TERAZOSIN HYDROCHLORIDE [Suspect]
     Active Substance: TERAZOSIN HYDROCHLORIDE
  16. TRESIBA [Suspect]
     Active Substance: INSULIN DEGLUDEC
  17. VALGANCICLOVIR [Suspect]
     Active Substance: VALGANCICLOVIR
  18. PANTOPRAZOLE [Suspect]
     Active Substance: PANTOPRAZOLE

REACTIONS (1)
  - Febrile neutropenia [Unknown]
